FAERS Safety Report 23433564 (Version 4)
Quarter: 2024Q1

REPORT INFORMATION
  Report Type: Spontaneous
  Country: US (occurrence: US)
  Receive Date: 20240123
  Receipt Date: 20240314
  Transmission Date: 20240410
  Serious: No
  Sender: FDA-Public Use
  Company Number: US-PFIZER INC-PV202400008534

PATIENT
  Age: 51 Year
  Sex: Female

DRUGS (4)
  1. CIBINQO [Suspect]
     Active Substance: ABROCITINIB
     Indication: Dermatitis atopic
     Dosage: 200 MG PO (PER ORAL) ONCE DAILY QUANTITY 8 REFILLS AL
     Route: 048
  2. CIBINQO [Suspect]
     Active Substance: ABROCITINIB
     Indication: Skin disorder
     Dosage: 100 MG PO (PER ORAL) ONCE DAILY QUANTITY 8
     Route: 048
  3. CIBINQO [Suspect]
     Active Substance: ABROCITINIB
     Indication: Erythema
  4. CIBINQO [Suspect]
     Active Substance: ABROCITINIB
     Indication: Pruritus

REACTIONS (2)
  - Drug ineffective [Unknown]
  - Product prescribing issue [Unknown]
